FAERS Safety Report 20133652 (Version 1)
Quarter: 2021Q4

REPORT INFORMATION
  Report Type: Report from Study
  Country: US (occurrence: US)
  Receive Date: 20211201
  Receipt Date: 20211201
  Transmission Date: 20220303
  Serious: Yes (Hospitalization, Other)
  Sender: FDA-Public Use
  Company Number: US-SA-2017SA094014

PATIENT
  Age: 49 Year
  Sex: Female

DRUGS (2)
  1. TERIFLUNOMIDE [Suspect]
     Active Substance: TERIFLUNOMIDE
     Indication: Multiple sclerosis
     Dosage: 14 MG, QD
     Route: 048
     Dates: start: 20170517, end: 20170520
  2. TERIFLUNOMIDE [Suspect]
     Active Substance: TERIFLUNOMIDE
     Indication: Systemic lupus erythematosus
     Dosage: 14 MG, QD
     Route: 048
     Dates: start: 20170522

REACTIONS (21)
  - Systemic lupus erythematosus [Not Recovered/Not Resolved]
  - Nerve injury [Recovering/Resolving]
  - Pain [Recovering/Resolving]
  - Frustration tolerance decreased [Not Recovered/Not Resolved]
  - Stress [Not Recovered/Not Resolved]
  - Malaise [Not Recovered/Not Resolved]
  - Crying [Not Recovered/Not Resolved]
  - Anger [Unknown]
  - Nasopharyngitis [Not Recovered/Not Resolved]
  - Oropharyngeal pain [Not Recovered/Not Resolved]
  - Headache [Recovered/Resolved]
  - Nausea [Recovered/Resolved]
  - Arthralgia [Recovered/Resolved]
  - Alopecia [Not Recovered/Not Resolved]
  - Spinal operation [Unknown]
  - Pain [Unknown]
  - Arthralgia [Recovering/Resolving]
  - Pain [Recovering/Resolving]
  - Off label use [Unknown]
  - Product dose omission issue [Unknown]
  - Product dose omission issue [Unknown]

NARRATIVE: CASE EVENT DATE: 20170101
